FAERS Safety Report 12283787 (Version 1)
Quarter: 2016Q2

REPORT INFORMATION
  Report Type: Spontaneous
  Country: US (occurrence: US)
  Receive Date: 20160419
  Receipt Date: 20160419
  Transmission Date: 20160815
  Serious: No
  Sender: FDA-Public Use
  Company Number: US-BANPHARM-20153884

PATIENT
  Age: 45 Year
  Sex: Male
  Weight: 83.91 kg

DRUGS (3)
  1. MULTIPLE SUPPLEMENTS [Concomitant]
  2. ALEVE [Suspect]
     Active Substance: NAPROXEN SODIUM
     Indication: BACK PAIN
     Dosage: 1-2 DF, PRN,
     Route: 048
  3. ALEVE [Suspect]
     Active Substance: NAPROXEN SODIUM
     Indication: BACK PAIN
     Dosage: 2-3 DF, PRN,
     Route: 048
     Dates: start: 20150417

REACTIONS (4)
  - Incorrect drug administration duration [Unknown]
  - Incorrect dose administered [Unknown]
  - Palpitations [Unknown]
  - Heart rate increased [Unknown]

NARRATIVE: CASE EVENT DATE: 20150417
